FAERS Safety Report 22533418 (Version 2)
Quarter: 2023Q2

REPORT INFORMATION
  Report Type: Spontaneous
  Country: US (occurrence: US)
  Receive Date: 20230608
  Receipt Date: 20230615
  Transmission Date: 20230721
  Serious: Yes (Hospitalization, Other)
  Sender: FDA-Public Use
  Company Number: US-MLMSERVICE-20230524-4303868-1

PATIENT
  Age: 55 Year
  Sex: Female
  Weight: 115.7 kg

DRUGS (1)
  1. METOPROLOL TARTRATE [Suspect]
     Active Substance: METOPROLOL TARTRATE
     Indication: Atrial tachycardia
     Dosage: 3.5 MILLIGRAM (1 TOTAL) (5 MG/5 ML INTRAVENOUS SOLUTION)
     Route: 042

REACTIONS (2)
  - Atrioventricular block first degree [Recovered/Resolved]
  - Bradycardia [Recovered/Resolved]
